FAERS Safety Report 15153407 (Version 1)
Quarter: 2018Q3

REPORT INFORMATION
  Report Type: Spontaneous
  Country: US (occurrence: US)
  Receive Date: 20180619
  Receipt Date: 20180619
  Transmission Date: 20181010
  Serious: Yes (Disabling)
  Sender: FDA-Public Use
  Company Number: None

PATIENT
  Age: 89 Year
  Sex: Female
  Weight: 50.8 kg

DRUGS (9)
  1. HCTZ [Concomitant]
     Active Substance: HYDROCHLOROTHIAZIDE
  2. CALCIUM WITH D [Concomitant]
     Active Substance: CALCIUM\VITAMIN D
  3. LOSARTAN. [Concomitant]
     Active Substance: LOSARTAN
  4. PROLIA [Suspect]
     Active Substance: DENOSUMAB
     Indication: OSTEOPOROSIS
     Dates: start: 20150115, end: 20171019
  5. ALDACTONE [Concomitant]
     Active Substance: SPIRONOLACTONE
  6. MAGNESIUM [Concomitant]
     Active Substance: MAGNESIUM
  7. DILTIAZEM. [Concomitant]
     Active Substance: DILTIAZEM
  8. SYNTHROID [Concomitant]
     Active Substance: LEVOTHYROXINE SODIUM
  9. XARELTO [Concomitant]
     Active Substance: RIVAROXABAN

REACTIONS (2)
  - Dental restoration failure [None]
  - Pain in jaw [None]

NARRATIVE: CASE EVENT DATE: 20170110
